FAERS Safety Report 6849707-7 (Version None)
Quarter: 2010Q3

REPORT INFORMATION
  Report Type: 
  Country: None (occurrence: None)
  Receive Date: 20100716
  Receipt Date: 20071003
  Transmission Date: 20110219
  Serious: No
  Sender: FDA-Public Use
  Company Number: US-PFIZER INC-2007083962

PATIENT
  Sex: Male
  Weight: 88.181 kg

DRUGS (6)
  1. CHANTIX [Suspect]
     Indication: SMOKING CESSATION THERAPY
     Route: 048
     Dates: start: 20070801, end: 20070918
  2. ATENOLOL [Concomitant]
  3. VYTORIN [Concomitant]
  4. DILAUDID [Concomitant]
  5. SYNTHROID [Concomitant]
  6. OXYMORPHONE HYDROCHLORIDE [Concomitant]

REACTIONS (2)
  - DECREASED APPETITE [None]
  - NAUSEA [None]
